FAERS Safety Report 7880401-X (Version None)
Quarter: 2011Q4

REPORT INFORMATION
  Report Type: 
  Country: None (occurrence: None)
  Receive Date: 20111101
  Receipt Date: 20111024
  Transmission Date: 20120403
  Serious: Yes (Hospitalization)
  Sender: FDA-Public Use
  Company Number: PHEH2011US04032

PATIENT
  Age: 21 Year
  Sex: Female
  Weight: 40.816 kg

DRUGS (3)
  1. TOBI [Suspect]
     Indication: DWARFISM
  2. PULMOZYME [Concomitant]
     Dosage: UNK UKN, UNK
  3. TOBI [Suspect]
     Indication: CYSTIC FIBROSIS
     Dosage: 300 MG, BID (28 DAYS ON AND 28 DAYS OFF)
     Dates: start: 20090306

REACTIONS (3)
  - DYSPNOEA [None]
  - PYREXIA [None]
  - STAPHYLOCOCCAL INFECTION [None]
